FAERS Safety Report 25688897 (Version 2)
Quarter: 2025Q3

REPORT INFORMATION
  Report Type: Spontaneous
  Country: JP (occurrence: JP)
  Receive Date: 20250818
  Receipt Date: 20250821
  Transmission Date: 20251021
  Serious: Yes (Death, Other)
  Sender: GILEAD
  Company Number: JP-GILEAD-2025-0724520

PATIENT
  Age: 65 Year
  Sex: Female

DRUGS (1)
  1. TRODELVY [Suspect]
     Active Substance: SACITUZUMAB GOVITECAN-HZIY
     Indication: Triple negative breast cancer
     Route: 065
     Dates: start: 20250625, end: 20250625

REACTIONS (5)
  - Cachexia [Unknown]
  - Neutrophil count decreased [Unknown]
  - Triple negative breast cancer [Fatal]
  - Femur fracture [Unknown]
  - General physical health deterioration [Unknown]

NARRATIVE: CASE EVENT DATE: 20250101
